FAERS Safety Report 13156163 (Version 1)
Quarter: 2017Q1

REPORT INFORMATION
  Report Type: Spontaneous
  Country: US (occurrence: US)
  Receive Date: 20170126
  Receipt Date: 20170126
  Transmission Date: 20170428
  Serious: Yes (Other)
  Sender: FDA-Public Use
  Company Number: PHHY2017US008498

PATIENT
  Age: 45 Year
  Sex: Female

DRUGS (1)
  1. MIRTAZAPINE. [Suspect]
     Active Substance: MIRTAZAPINE
     Indication: EPILEPSY
     Dosage: 15 MG, QD (AT NIGHT)
     Route: 065

REACTIONS (3)
  - Cerebral disorder [Unknown]
  - Anxiety [Unknown]
  - Convulsive threshold lowered [Unknown]
